FAERS Safety Report 8184882-6 (Version None)
Quarter: 2012Q1

REPORT INFORMATION
  Report Type: 
  Country: None (occurrence: None)
  Receive Date: 20120305
  Receipt Date: 20120301
  Transmission Date: 20120608
  Serious: Yes (Hospitalization)
  Sender: FDA-Public Use
  Company Number: US-GLAXOSMITHKLINE-A0893703A

PATIENT
  Age: 66 Year
  Sex: Male
  Weight: 104 kg

DRUGS (9)
  1. VYTORIN [Concomitant]
  2. INSULIN [Concomitant]
  3. DIOVAN [Concomitant]
  4. NORVASC [Concomitant]
  5. AVANDIA [Suspect]
     Indication: TYPE 2 DIABETES MELLITUS
     Dosage: 4MG TWICE PER DAY
     Route: 048
     Dates: start: 20050101, end: 20080101
  6. SPIRIVA [Concomitant]
  7. LOPID [Concomitant]
  8. TENORMIN [Concomitant]
  9. CATAPRES [Concomitant]

REACTIONS (3)
  - MYOCARDIAL INFARCTION [None]
  - CARDIAC FAILURE CONGESTIVE [None]
  - CARDIAC PACEMAKER INSERTION [None]
